FAERS Safety Report 9720116 (Version 1)
Quarter: 2013Q4

REPORT INFORMATION
  Report Type: Other
  Country: FR (occurrence: FR)
  Receive Date: 20131128
  Receipt Date: 20131128
  Transmission Date: 20140711
  Serious: Yes (Other)
  Sender: FDA-Public Use
  Company Number: FR-BRISTOL-MYERS SQUIBB COMPANY-19811090

PATIENT
  Sex: Female

DRUGS (1)
  1. METFORMIN HCL [Suspect]

REACTIONS (2)
  - Craniofacial dysostosis [Unknown]
  - Pancreatic islets hyperplasia [Unknown]
